FAERS Safety Report 16352838 (Version 1)
Quarter: 2019Q2

REPORT INFORMATION
  Report Type: Other
  Country: ES (occurrence: ES)
  Receive Date: 20190524
  Receipt Date: 20190524
  Transmission Date: 20190711
  Serious: Yes (Other)
  Sender: FDA-Public Use
  Company Number: ES-APOTEX-2019AP014571

PATIENT
  Age: 85 Year
  Sex: Female

DRUGS (1)
  1. SERTRALINE [Suspect]
     Active Substance: SERTRALINE HYDROCHLORIDE
     Indication: ADJUSTMENT DISORDER
     Dosage: 50 MG, QD
     Route: 048
     Dates: start: 20180131, end: 20181226

REACTIONS (1)
  - Hepatitis acute [Recovered/Resolved]

NARRATIVE: CASE EVENT DATE: 20181221
